FAERS Safety Report 8181377-0 (Version None)
Quarter: 2012Q1

REPORT INFORMATION
  Report Type: 
  Country: None (occurrence: None)
  Receive Date: 20120302
  Receipt Date: 20120223
  Transmission Date: 20120608
  Serious: Yes (Hospitalization, Other)
  Sender: FDA-Public Use
  Company Number: US-BAYER-2011-123050

PATIENT
  Age: 25 Year
  Sex: Female
  Weight: 84 kg

DRUGS (19)
  1. VITAMIN B12 NOS [Concomitant]
     Indication: VITAMIN B12 DEFICIENCY
  2. YASMIN [Concomitant]
     Indication: ORAL CONTRACEPTION
     Dosage: UNK
     Dates: start: 20040101, end: 20110101
  3. ASPIRIN [Concomitant]
  4. PROMETHAZINE [Concomitant]
  5. LORTAB [Concomitant]
     Indication: MIGRAINE
  6. WELCHOL [Concomitant]
  7. THYROID [Concomitant]
  8. DROSPIRENONE AND ETHINYL ESTRADIOL [Suspect]
     Indication: ORAL CONTRACEPTION
     Dosage: UNK
     Dates: start: 20040101, end: 20110101
  9. BENTYL [Concomitant]
  10. PHENERGAN [Concomitant]
  11. ZOFRAN [Concomitant]
  12. DICLOMINE [Concomitant]
  13. CYANOCOBALAMIN [Concomitant]
  14. SYNTHROID [Concomitant]
  15. ENTOCORT EC [Concomitant]
  16. PENTASA [Concomitant]
  17. IMURAN [Concomitant]
  18. MERCAPTOPURINE [Concomitant]
  19. REMICADE [Concomitant]
     Indication: CROHN'S DISEASE

REACTIONS (7)
  - RECTAL HAEMORRHAGE [None]
  - GALLBLADDER DISORDER [None]
  - CHOLECYSTITIS CHRONIC [None]
  - DYSPNOEA [None]
  - DIARRHOEA [None]
  - PULMONARY EMBOLISM [None]
  - ABDOMINAL PAIN [None]
